FAERS Safety Report 8225102-3 (Version None)
Quarter: 2012Q1

REPORT INFORMATION
  Report Type: 
  Country: None (occurrence: None)
  Receive Date: 20120321
  Receipt Date: 20120315
  Transmission Date: 20120608
  Serious: Yes (Other)
  Sender: FDA-Public Use
  Company Number: PHHY2012DE023271

PATIENT

DRUGS (1)
  1. VALSARTAN [Suspect]
     Indication: HYPERTENSION
     Dosage: 2 DF, QD
     Route: 048
     Dates: start: 20110101

REACTIONS (1)
  - PLEURAL EFFUSION [None]
